FAERS Safety Report 10145485 (Version 2)
Quarter: 2014Q2

REPORT INFORMATION
  Report Type: Spontaneous
  Country: US (occurrence: US)
  Receive Date: 20140501
  Receipt Date: 20140610
  Transmission Date: 20141212
  Serious: No
  Sender: FDA-Public Use
  Company Number: US-009507513-1404USA008416

PATIENT
  Sex: Female

DRUGS (1)
  1. DULERA [Suspect]
     Indication: ASTHMA
     Dosage: 200 MCG/2 PUFFS, BID
     Route: 055

REACTIONS (3)
  - Lung disorder [Unknown]
  - Drug dose omission [Unknown]
  - Product container issue [Unknown]
